FAERS Safety Report 9201786 (Version 1)
Quarter: 2013Q2

REPORT INFORMATION
  Report Type: Spontaneous
  Country: US (occurrence: US)
  Receive Date: 20130401
  Receipt Date: 20130401
  Transmission Date: 20140414
  Serious: Yes (Other)
  Sender: FDA-Public Use
  Company Number: US-AMGEN-USASP2013021896

PATIENT
  Sex: Female

DRUGS (5)
  1. NPLATE [Suspect]
     Indication: IDIOPATHIC THROMBOCYTOPENIC PURPURA
     Dosage: UNK
     Dates: start: 201302
  2. RITUXAN [Concomitant]
  3. DECADRON                           /00016001/ [Concomitant]
  4. PREDNISONE [Concomitant]
  5. IMMUNE GLOBULIN [Concomitant]
     Route: 042

REACTIONS (2)
  - Platelet count decreased [Unknown]
  - Drug ineffective [Unknown]
